FAERS Safety Report 7992084-9 (Version None)
Quarter: 2011Q4

REPORT INFORMATION
  Report Type: 
  Country: None (occurrence: None)
  Receive Date: 20111219
  Receipt Date: 20110325
  Transmission Date: 20120403
  Serious: No
  Sender: FDA-Public Use
  Company Number: US-ASTRAZENECA-2011SE17708

PATIENT
  Age: 69 Year
  Sex: Female

DRUGS (2)
  1. CRESTOR [Suspect]
     Route: 048
  2. TENORETIC 100 [Suspect]
     Route: 065

REACTIONS (4)
  - HEART VALVE INCOMPETENCE [None]
  - INTERVERTEBRAL DISC PROTRUSION [None]
  - HYPERTENSION [None]
  - PAIN IN EXTREMITY [None]
